FAERS Safety Report 24219157 (Version 9)
Quarter: 2025Q2

REPORT INFORMATION
  Report Type: Report from Study
  Country: US (occurrence: US)
  Receive Date: 20240816
  Receipt Date: 20250502
  Transmission Date: 20250717
  Serious: Yes (Other)
  Sender: NOVARTIS
  Company Number: US-002147023-NVSC2024US056978

PATIENT
  Age: 38 Year
  Sex: Female

DRUGS (3)
  1. KESIMPTA [Suspect]
     Active Substance: OFATUMUMAB
     Indication: Multiple sclerosis
     Dosage: 20 MG, QW
     Route: 058
     Dates: start: 20231121
  2. KESIMPTA [Suspect]
     Active Substance: OFATUMUMAB
     Route: 058
  3. KESIMPTA [Suspect]
     Active Substance: OFATUMUMAB
     Dosage: 20MG/.4ML, QMO
     Route: 058

REACTIONS (20)
  - Multiple sclerosis relapse [Unknown]
  - Pneumonia [Recovered/Resolved]
  - Gastric ulcer [Recovered/Resolved]
  - Pain [Recovered/Resolved]
  - Musculoskeletal discomfort [Unknown]
  - Injection site haemorrhage [Unknown]
  - Back pain [Unknown]
  - Muscle spasms [Recovering/Resolving]
  - Temporomandibular pain and dysfunction syndrome [Unknown]
  - Asthma [Unknown]
  - Weight decreased [Recovered/Resolved]
  - Fatigue [Recovered/Resolved]
  - Sleep apnoea syndrome [Unknown]
  - Sleep deficit [Unknown]
  - Accident [Unknown]
  - Musculoskeletal stiffness [Unknown]
  - Limb discomfort [Unknown]
  - Inappropriate schedule of product administration [Recovered/Resolved]
  - Product distribution issue [Recovered/Resolved]
  - Facial discomfort [Unknown]

NARRATIVE: CASE EVENT DATE: 20240219
